FAERS Safety Report 4447112-4 (Version None)
Quarter: 2004Q3

REPORT INFORMATION
  Report Type: 
  Country: None (occurrence: None)
  Receive Date: 20040903
  Receipt Date: 20040903
  Transmission Date: 20050211
  Serious: No
  Sender: FDA-Public Use
  Company Number: None

PATIENT

DRUGS (1)
  1. PAROXETINE HYDROCHLORIDE 25 MG TABLET AMERICAN HEALTH PACKAGING [Suspect]
     Dates: start: 20040601, end: 20040901

REACTIONS (1)
  - MEDICATION ERROR [None]
